FAERS Safety Report 24148340 (Version 2)
Quarter: 2025Q2

REPORT INFORMATION
  Report Type: Spontaneous
  Country: US (occurrence: US)
  Receive Date: 20240729
  Receipt Date: 20250502
  Transmission Date: 20250717
  Serious: No
  Sender: PFIZER
  Company Number: US-PFIZER INC-202400223988

PATIENT
  Age: 60 Year
  Sex: Female

DRUGS (24)
  1. XELJANZ XR [Suspect]
     Active Substance: TOFACITINIB CITRATE
     Dosage: 11 MG, DAILY
     Route: 048
     Dates: start: 20240430
  2. XELJANZ XR [Suspect]
     Active Substance: TOFACITINIB CITRATE
     Dosage: 11 MG, DAILY
     Route: 048
     Dates: start: 202504
  3. CELECOXIB [Concomitant]
     Active Substance: CELECOXIB
  4. TRIAMCINOLONE ACETONIDE [Concomitant]
     Active Substance: TRIAMCINOLONE ACETONIDE
  5. MONTELUKAST SODIUM [Concomitant]
     Active Substance: MONTELUKAST SODIUM
  6. METHOTREXATE [Concomitant]
     Active Substance: METHOTREXATE
  7. ATENOLOL [Concomitant]
     Active Substance: ATENOLOL
  8. FOLIC ACID [Concomitant]
     Active Substance: FOLIC ACID
  9. ZYRTEC [Concomitant]
     Active Substance: CETIRIZINE HYDROCHLORIDE
  10. PANTOPRAZOLE [Concomitant]
     Active Substance: PANTOPRAZOLE
  11. CICLOPIROX [Concomitant]
     Active Substance: CICLOPIROX
  12. CULTURELLE [Concomitant]
     Active Substance: LACTOBACILLUS RHAMNOSUS
  13. EPIPEN [Concomitant]
     Active Substance: EPINEPHRINE
  14. MUPIROCIN [Concomitant]
     Active Substance: MUPIROCIN
  15. GUAR GUM [Concomitant]
     Active Substance: GUAR GUM
  16. DICLOFENAC [Concomitant]
     Active Substance: DICLOFENAC
  17. FLONASE [Concomitant]
     Active Substance: FLUTICASONE PROPIONATE
  18. ESTRACE [Concomitant]
     Active Substance: ESTRADIOL
  19. DIPHENHYDRAMINE [Concomitant]
     Active Substance: DIPHENHYDRAMINE
  20. CALCIUM [Concomitant]
     Active Substance: CALCIUM
  21. CHOLECALCIFEROL [Concomitant]
     Active Substance: CHOLECALCIFEROL
  22. CLOBETASOL PROPIONATE [Concomitant]
     Active Substance: CLOBETASOL PROPIONATE
  23. KETOCONAZOLE [Concomitant]
     Active Substance: KETOCONAZOLE
  24. BIFIDOBACTERIUM ANIMALIS LACTIS [Concomitant]
     Active Substance: BIFIDOBACTERIUM ANIMALIS LACTIS

REACTIONS (7)
  - Therapeutic product effect incomplete [Not Recovered/Not Resolved]
  - Acne [Not Recovered/Not Resolved]
  - Ocular hyperaemia [Not Recovered/Not Resolved]
  - Ocular discomfort [Not Recovered/Not Resolved]
  - Lacrimation increased [Not Recovered/Not Resolved]
  - Eye irritation [Not Recovered/Not Resolved]
  - Cystitis [Unknown]

NARRATIVE: CASE EVENT DATE: 20240101
